FAERS Safety Report 19058910 (Version 1)
Quarter: 2021Q1

REPORT INFORMATION
  Report Type: Report from Study
  Country: IT (occurrence: IT)
  Receive Date: 20210325
  Receipt Date: 20210325
  Transmission Date: 20210420
  Serious: Yes (Hospitalization)
  Sender: FDA-Public Use
  Company Number: IT-TAKEDA-IT201407438

PATIENT
  Age: 7 Year
  Sex: Female

DRUGS (4)
  1. IDURSULFASE [Suspect]
     Active Substance: IDURSULFASE
     Indication: MUCOPOLYSACCHARIDOSIS II
     Dosage: 0.5 MILLIGRAM/KILOGRAM, 1/WEEK
     Route: 042
     Dates: start: 20090308, end: 20110319
  2. IDURSULFASE [Suspect]
     Active Substance: IDURSULFASE
     Dosage: 0.5 MILLIGRAM/KILOGRAM, 1/WEEK
     Route: 042
     Dates: start: 20110320, end: 20121130
  3. IDURSULFASE [Suspect]
     Active Substance: IDURSULFASE
     Route: 042
     Dates: start: 20121201
  4. OXATOMIDE [Concomitant]
     Active Substance: OXATOMIDE
     Indication: PREMEDICATION
     Dosage: UNK
     Route: 048
     Dates: start: 201103, end: 20121102

REACTIONS (3)
  - Infusion site erythema [Recovered/Resolved]
  - Investigation [Unknown]
  - Infusion related reaction [Recovered/Resolved]

NARRATIVE: CASE EVENT DATE: 20110324
